FAERS Safety Report 17203058 (Version 2)
Quarter: 2020Q3

REPORT INFORMATION
  Report Type: Other
  Country: GB (occurrence: GB)
  Receive Date: 20191226
  Receipt Date: 20200130
  Transmission Date: 20201104
  Serious: Yes (Death, Other)
  Sender: FDA-Public Use
  Company Number: GB-CELLTRION INC.-2019GB027567

PATIENT

DRUGS (8)
  1. POLATUZUMAB VEDOTIN. [Suspect]
     Active Substance: POLATUZUMAB VEDOTIN
     Indication: DIFFUSE LARGE B-CELL LYMPHOMA REFRACTORY
     Dosage: 120 MG EVERY 3 WEEKS
     Route: 042
     Dates: start: 20191014
  2. ALLOPURINOL. [Concomitant]
     Active Substance: ALLOPURINOL
     Dosage: 300 MG, QD
     Route: 048
     Dates: start: 20191014, end: 20191104
  3. BENDAMUSTINE [Suspect]
     Active Substance: BENDAMUSTINE
     Dosage: 157.5 MG EVERY 3 WEEKS
     Route: 042
     Dates: start: 20191015
  4. ACICLOVIR [Concomitant]
     Active Substance: ACYCLOVIR
     Dosage: 800 MG, QD
     Route: 048
     Dates: start: 20191014, end: 20191104
  5. BENDAMUSTINE [Suspect]
     Active Substance: BENDAMUSTINE
     Indication: DIFFUSE LARGE B-CELL LYMPHOMA REFRACTORY
     Dosage: 157.5 MG EVERY 3 WEEKS
     Route: 042
     Dates: start: 20191014
  6. SEPTRIN [Concomitant]
     Active Substance: SULFAMETHOXAZOLE\TRIMETHOPRIM
     Dosage: 960 MG, QD
     Route: 048
     Dates: start: 20191014, end: 20191104
  7. RITUXIMAB (UNKNOWN) [Suspect]
     Active Substance: RITUXIMAB
     Indication: DIFFUSE LARGE B-CELL LYMPHOMA REFRACTORY
     Dosage: 650 MG EVERY 3 WEEKS
     Route: 041
     Dates: start: 20191014
  8. POLATUZUMAB VEDOTIN. [Suspect]
     Active Substance: POLATUZUMAB VEDOTIN
     Dosage: 120 MG EVERY 3 WEEKS
     Route: 042
     Dates: start: 20191015

REACTIONS (9)
  - Ill-defined disorder [Fatal]
  - Multiple organ dysfunction syndrome [Fatal]
  - Diffuse large B-cell lymphoma [Fatal]
  - Gastrointestinal disorder [Fatal]
  - Pleural effusion [Fatal]
  - Ascites [Fatal]
  - Pulmonary sepsis [Fatal]
  - Pneumonia [Fatal]
  - Underdose [Unknown]

NARRATIVE: CASE EVENT DATE: 20191029
